FAERS Safety Report 5136173-5 (Version None)
Quarter: 2006Q4

REPORT INFORMATION
  Report Type: 
  Country: None (occurrence: None)
  Receive Date: 20061027
  Receipt Date: 20060801
  Transmission Date: 20070319
  Serious: Yes (Hospitalization)
  Sender: FDA-Public Use
  Company Number: SE-JNJFOC-20061002409

PATIENT
  Age: 68 Year
  Sex: Female

DRUGS (3)
  1. REMINYL [Suspect]
     Route: 065
  2. REMINYL [Suspect]
     Indication: DRUG USE FOR UNKNOWN INDICATION
     Route: 065
  3. ATENOLOL [Concomitant]

REACTIONS (4)
  - BRADYCARDIA [None]
  - MEDICATION ERROR [None]
  - NAUSEA [None]
  - VOMITING [None]
